FAERS Safety Report 4391912-6 (Version None)
Quarter: 2004Q3

REPORT INFORMATION
  Report Type: 
  Country: None (occurrence: None)
  Receive Date: 20040701
  Receipt Date: 20040624
  Transmission Date: 20050211
  Serious: Yes (Death, Hospitalization)
  Sender: FDA-Public Use
  Company Number: 2004220650US

PATIENT
  Age: 20 Year
  Sex: Female

DRUGS (1)
  1. CELEBREX [Suspect]
     Indication: DYSMENORRHOEA

REACTIONS (3)
  - HEPATIC FAILURE [None]
  - NAUSEA [None]
  - VOMITING [None]
